FAERS Safety Report 6092745-5 (Version None)
Quarter: 2009Q1

REPORT INFORMATION
  Report Type: 
  Country: None (occurrence: None)
  Receive Date: 20090225
  Receipt Date: 20090220
  Transmission Date: 20090719
  Serious: Yes (Other)
  Sender: FDA-Public Use
  Company Number: US-JNJFOC-20090205637

PATIENT
  Age: 81 Year
  Sex: Male

DRUGS (4)
  1. IMODIUM A-D [Suspect]
     Dosage: DAILY
     Route: 048
  2. IMODIUM A-D [Suspect]
     Indication: DRUG USE FOR UNKNOWN INDICATION
     Dosage: AS NEEDED
     Route: 048
  3. PLAVIX [Suspect]
     Indication: CARDIAC DISORDER
     Dosage: 1/2 OF A 75MG TABLET ONCE DAILY
  4. OTHER UNSPECIFIED MEDICATIONS [Concomitant]

REACTIONS (2)
  - GINGIVAL BLEEDING [None]
  - RECTAL HAEMORRHAGE [None]
